FAERS Safety Report 15467914 (Version 1)
Quarter: 2018Q4

REPORT INFORMATION
  Report Type: Spontaneous
  Country: IT (occurrence: IT)
  Receive Date: 20181005
  Receipt Date: 20181005
  Transmission Date: 20190204
  Serious: Yes (Other)
  Sender: FDA-Public Use
  Company Number: IT-ROCHE-2194960

PATIENT
  Age: 82 Year
  Sex: Female

DRUGS (2)
  1. ROACTEMRA [Suspect]
     Active Substance: TOCILIZUMAB
     Indication: RHEUMATOID ARTHRITIS
     Dosage: 162 MG, UNK
     Route: 058
  2. PALEXIA [Suspect]
     Active Substance: TAPENTADOL HYDROCHLORIDE
     Indication: RHEUMATOID ARTHRITIS
     Dosage: 25 MG, UNK
     Route: 048

REACTIONS (2)
  - Throat tightness [Unknown]
  - Headache [Unknown]
